FAERS Safety Report 8282194-3 (Version None)
Quarter: 2012Q2

REPORT INFORMATION
  Report Type: 
  Country: None (occurrence: None)
  Receive Date: 20120413
  Receipt Date: 20120406
  Transmission Date: 20120825
  Serious: Yes (Hospitalization, Other)
  Sender: FDA-Public Use
  Company Number: FR-PFIZER INC-2012014878

PATIENT
  Age: 13 Month
  Sex: Male
  Weight: 11 kg

DRUGS (4)
  1. MOROCTOCOG ALFA [Suspect]
     Indication: FACTOR VIII DEFICIENCY
     Dosage: 500 IU, CYCLIC, ONCE A WEEK
     Route: 042
     Dates: start: 20111125
  2. NOVOSEVEN [Concomitant]
     Indication: FACTOR VIII DEFICIENCY
     Dosage: 3 MG, 1X/DAY
     Route: 042
     Dates: start: 20120304, end: 20120304
  3. NOVOSEVEN [Concomitant]
     Dosage: 1 MG, 8X/DAY
     Route: 042
     Dates: start: 20120306, end: 20120307
  4. NOVOSEVEN [Concomitant]
     Dosage: 1 MG, 6X/DAY
     Route: 042
     Dates: start: 20120308, end: 20120313

REACTIONS (2)
  - HAEMATOMA [None]
  - FACTOR VIII INHIBITION [None]
